FAERS Safety Report 7808592-7 (Version None)
Quarter: 2011Q4

REPORT INFORMATION
  Report Type: 
  Country: None (occurrence: None)
  Receive Date: 20111012
  Receipt Date: 20111009
  Transmission Date: 20120403
  Serious: Yes (Other)
  Sender: FDA-Public Use
  Company Number: US-PFIZER INC-2011240628

PATIENT
  Sex: Female
  Weight: 51.2 kg

DRUGS (2)
  1. OXYCODONE [Concomitant]
     Dosage: 15 MG, 4X/DAY
  2. LYRICA [Suspect]
     Indication: NERVE INJURY
     Dosage: 50 MG, 3X/DAY
     Route: 048
     Dates: start: 20110822

REACTIONS (4)
  - DISORIENTATION [None]
  - HYPERSOMNIA [None]
  - CONVULSION [None]
  - VISION BLURRED [None]
